FAERS Safety Report 6250826-7 (Version None)
Quarter: 2009Q2

REPORT INFORMATION
  Report Type: 
  Country: None (occurrence: None)
  Receive Date: 20090630
  Receipt Date: 20090402
  Transmission Date: 20091009
  Serious: No
  Sender: FDA-Public Use
  Company Number: US-ABBOTT-09P-163-0566224-00

PATIENT
  Sex: Female

DRUGS (4)
  1. ZEMPLAR [Suspect]
     Indication: HYPERPARATHYROIDISM
     Dates: start: 20090101
  2. CIPRO [Suspect]
     Indication: SINUSITIS
     Dates: start: 20090323, end: 20090401
  3. CIPRO [Suspect]
     Indication: URINARY TRACT INFECTION
  4. NORVASC [Concomitant]
     Indication: DRUG USE FOR UNKNOWN INDICATION

REACTIONS (3)
  - DYSGEUSIA [None]
  - SINUSITIS [None]
  - URINARY TRACT INFECTION [None]
